FAERS Safety Report 23982071 (Version 3)
Quarter: 2024Q3

REPORT INFORMATION
  Report Type: Spontaneous
  Country: IL (occurrence: IL)
  Receive Date: 20240617
  Receipt Date: 20240916
  Transmission Date: 20241016
  Serious: Yes (Life-Threatening, Hospitalization, Other)
  Sender: ALNYLAM PHARMACEUTICALS
  Company Number: IL-ALNYLAM NETHERLANDS BV-ALN-2024-003310

PATIENT

DRUGS (3)
  1. ONPATTRO [Suspect]
     Active Substance: PATISIRAN SODIUM
     Indication: Familial amyloidosis
     Dosage: 22 MILLIGRAM
     Route: 065
     Dates: start: 20210831, end: 20210831
  2. ONPATTRO [Suspect]
     Active Substance: PATISIRAN SODIUM
     Dosage: 22 MILLIGRAM
     Route: 065
     Dates: start: 20240505, end: 20240505
  3. COUMADIN [Concomitant]
     Active Substance: WARFARIN SODIUM
     Indication: Product used for unknown indication
     Dosage: UNK
     Route: 065

REACTIONS (10)
  - Myocardial infarction [Recovering/Resolving]
  - Cardiac failure [Recovering/Resolving]
  - Loss of consciousness [Unknown]
  - Cardiac valve rupture [Recovering/Resolving]
  - Cardiac pacemaker insertion [Unknown]
  - Prosthetic cardiac valve obstruction [Recovered/Resolved]
  - Embolic stroke [Unknown]
  - Arrhythmia [Not Recovered/Not Resolved]
  - Confusional state [Unknown]
  - Intentional dose omission [Unknown]

NARRATIVE: CASE EVENT DATE: 20220308
